FAERS Safety Report 24080668 (Version 2)
Quarter: 2024Q3

REPORT INFORMATION
  Report Type: Spontaneous
  Country: EG (occurrence: EG)
  Receive Date: 20240711
  Receipt Date: 20240722
  Transmission Date: 20241016
  Serious: Yes (Other)
  Sender: MERCK
  Company Number: EG-009507513-2407EGY003477

PATIENT
  Sex: Female

DRUGS (6)
  1. KEYTRUDA [Suspect]
     Active Substance: PEMBROLIZUMAB
     Indication: Microsatellite instability cancer
     Dosage: 100 MILLIGRAM, Q3W,1ST INFUSION
     Route: 042
     Dates: start: 20240228, end: 20240228
  2. KEYTRUDA [Suspect]
     Active Substance: PEMBROLIZUMAB
     Indication: Endometrial cancer
     Dosage: 100 MILLIGRAM, Q3W, 2ND INFUSION
     Route: 042
     Dates: start: 20240320, end: 20240320
  3. KEYTRUDA [Suspect]
     Active Substance: PEMBROLIZUMAB
     Dosage: 100 MILLIGRAM, Q3W, 3RD INFUSION
     Route: 042
     Dates: start: 20240408, end: 20240408
  4. KEYTRUDA [Suspect]
     Active Substance: PEMBROLIZUMAB
     Dosage: 100 MILLIGRAM, Q3W, 4TH INFUSION
     Route: 042
     Dates: start: 20240501, end: 20240501
  5. KEYTRUDA [Suspect]
     Active Substance: PEMBROLIZUMAB
     Dosage: 100 MILLIGRAM, Q3W, 5TH INFUSION
     Route: 042
     Dates: start: 20240522, end: 20240522
  6. KEYTRUDA [Suspect]
     Active Substance: PEMBROLIZUMAB
     Dosage: 100 MILLIGRAM, Q3W, 6TH INFUSION
     Route: 042
     Dates: start: 20240611, end: 20240611

REACTIONS (6)
  - Hydrocephalus [Recovering/Resolving]
  - Off label use [Unknown]
  - Inappropriate schedule of product administration [Unknown]
  - Inappropriate schedule of product administration [Unknown]
  - Inappropriate schedule of product administration [Unknown]
  - Economic problem [Unknown]

NARRATIVE: CASE EVENT DATE: 20240101
